FAERS Safety Report 14913961 (Version 1)
Quarter: 2018Q2

REPORT INFORMATION
  Report Type: Spontaneous
  Country: US (occurrence: US)
  Receive Date: 20180518
  Receipt Date: 20180518
  Transmission Date: 20180711
  Serious: No
  Sender: FDA-Public Use
  Company Number: US-SHIRE-US201819093

PATIENT

DRUGS (1)
  1. GATTEX [Suspect]
     Active Substance: TEDUGLUTIDE\WATER
     Indication: OFF LABEL USE
     Dosage: UNK
     Route: 065

REACTIONS (5)
  - Blood urea nitrogen/creatinine ratio increased [Unknown]
  - Liver function test increased [Unknown]
  - Blood potassium increased [Unknown]
  - Blood magnesium decreased [Unknown]
  - Off label use [Unknown]
